FAERS Safety Report 8925143 (Version 1)
Quarter: 2012Q4

REPORT INFORMATION
  Report Type: Report from Study
  Country: US (occurrence: US)
  Receive Date: 20121126
  Receipt Date: 20121126
  Transmission Date: 20130627
  Serious: Yes (Hospitalization)
  Sender: FDA-Public Use
  Company Number: US-ASTRAZENECA-2012SE87299

PATIENT
  Age: 21358 Day
  Sex: Male
  Weight: 83.2 kg

DRUGS (9)
  1. ZD6474 [Suspect]
     Indication: GLIOBLASTOMA
     Route: 048
     Dates: start: 20090528, end: 20090706
  2. ZD6474 [Suspect]
     Indication: GLIOBLASTOMA
     Route: 048
     Dates: start: 20090717, end: 201002
  3. SIROLIMUS [Suspect]
     Indication: GLIOBLASTOMA
     Route: 048
     Dates: start: 20090528, end: 20090706
  4. DECADRON [Concomitant]
  5. BACTRIM [Concomitant]
  6. NEXIUM [Concomitant]
  7. HERBAL SUPPLEMENT [Concomitant]
  8. ATIVAN [Concomitant]
  9. LOVENOX [Concomitant]

REACTIONS (1)
  - Pulmonary embolism [Recovered/Resolved]
